FAERS Safety Report 7530055-7 (Version None)
Quarter: 2011Q2

REPORT INFORMATION
  Report Type: 
  Country: None (occurrence: None)
  Receive Date: 20110527
  Receipt Date: 20110519
  Transmission Date: 20111010
  Serious: Yes (Hospitalization)
  Sender: FDA-Public Use
  Company Number: 2011SP023634

PATIENT
  Age: 27 Year
  Sex: Male

DRUGS (3)
  1. KLONAPIN [Concomitant]
  2. SAPHRIS [Suspect]
     Indication: BIPOLAR DISORDER
     Dosage: 10 MG;QD;SL
     Route: 060
     Dates: start: 20110101
  3. CYMBALTA [Concomitant]

REACTIONS (1)
  - PANIC ATTACK [None]
